FAERS Safety Report 13720002 (Version 1)
Quarter: 2017Q3

REPORT INFORMATION
  Report Type: Spontaneous
  Country: CN (occurrence: CN)
  Receive Date: 20170705
  Receipt Date: 20170705
  Transmission Date: 20171127
  Serious: Yes (Hospitalization)
  Sender: FDA-Public Use
  Company Number: CN-ROCHE-1957836

PATIENT
  Age: 68 Year
  Sex: Male

DRUGS (3)
  1. ROCEPHIN [Suspect]
     Active Substance: CEFTRIAXONE SODIUM
     Indication: ERYSIPELAS
     Route: 041
     Dates: start: 20170217, end: 20170226
  2. MELILOTUS EXTRACT [Concomitant]
     Indication: ERYSIPELAS
     Dosage: 2 TABLET 3 TIMES PER DAY
     Route: 048
     Dates: start: 20170217, end: 20170226
  3. LEVOFLOXACIN. [Concomitant]
     Active Substance: LEVOFLOXACIN

REACTIONS (1)
  - Drug eruption [Recovering/Resolving]

NARRATIVE: CASE EVENT DATE: 20170226
